FAERS Safety Report 8034115-6 (Version None)
Quarter: 2012Q1

REPORT INFORMATION
  Report Type: 
  Country: None (occurrence: None)
  Receive Date: 20120110
  Receipt Date: 20120109
  Transmission Date: 20120608
  Serious: Yes (Hospitalization, Other)
  Sender: FDA-Public Use
  Company Number: CA-ABBOTT-12P-028-0889484-00

PATIENT
  Sex: Female
  Weight: 57.204 kg

DRUGS (3)
  1. HUMIRA [Suspect]
     Dosage: UNIT DOSE: 40 MILLIGRAM
  2. HUMIRA [Suspect]
     Indication: CROHN'S DISEASE
     Dosage: UNIT DOSE: 80 MILLIGRAM
     Route: 058
     Dates: start: 20110614
  3. HUMIRA [Suspect]
     Dosage: UNIT DOSE: 20 MILLIGRAM
     Dates: end: 20111101

REACTIONS (4)
  - DRUG INEFFECTIVE [None]
  - INTESTINAL RESECTION [None]
  - ILEAL STENOSIS [None]
  - ABDOMINAL ADHESIONS [None]
